FAERS Safety Report 8770913 (Version 1)
Quarter: 2012Q4

REPORT INFORMATION
  Report Type: 
  Country: US (occurrence: US)
  Receive Date: 20120906
  Receipt Date: 20120906
  Transmission Date: 20130627
  Serious: Yes (Hospitalization)
  Sender: FDA-Public Use
  Company Number: US-BAYER-2012-091263

PATIENT
  Age: 25 Year
  Sex: Female

DRUGS (9)
  1. YAZ [Suspect]
     Indication: PREMENSTRUAL SYNDROME
  2. AZITHROMYCIN [Concomitant]
     Dosage: 250 mg, two tablets at once today, then take one tablet daily
     Dates: start: 20110211
  3. METHYLPREDNISOLONE [Concomitant]
     Dosage: 4mg Dose pack 21^s; follow package directions
     Dates: start: 20110211
  4. FLUTICASONE [Concomitant]
     Indication: SINUS DISORDER
     Dosage: 50 ?g, BID
     Route: 045
     Dates: start: 20110321
  5. FLUTICASONE [Concomitant]
     Indication: SINUS DISORDER
     Dosage: UNK
     Dates: start: 20110504
  6. HYDROCODONE/ACETAMINOPHEN [Concomitant]
     Dosage: 5-325 tablet; Take 1 tablet every 4 to 6 hours as needed
     Route: 048
     Dates: start: 20110426
  7. NORCO [Concomitant]
     Indication: PAIN
     Dosage: Q4-6hr prn (every 4 to 6 hours, as needed)
     Route: 048
     Dates: start: 20110504
  8. CELEBREX [Concomitant]
     Indication: PAIN
     Dosage: 200 mg, daily
     Route: 048
     Dates: start: 20110504
  9. ALBUTEROL [Concomitant]
     Indication: ASTHMA
     Dosage: 90 ?g, UNK
     Route: 045
     Dates: start: 20110504

REACTIONS (1)
  - Deep vein thrombosis [None]
